FAERS Safety Report 7681593-8 (Version None)
Quarter: 2011Q3

REPORT INFORMATION
  Report Type: 
  Country: None (occurrence: None)
  Receive Date: 20110812
  Receipt Date: 20110802
  Transmission Date: 20111222
  Serious: Yes (Other)
  Sender: FDA-Public Use
  Company Number: PHHY2011US69175

PATIENT
  Sex: Female

DRUGS (1)
  1. GILENYA [Suspect]
     Indication: MULTIPLE SCLEROSIS
     Dosage: 0.5 MG, QD
     Route: 048
     Dates: start: 20110727

REACTIONS (6)
  - TOOTH DISCOLOURATION [None]
  - SKIN IRRITATION [None]
  - DERMATITIS INFECTED [None]
  - INFECTION [None]
  - SCAB [None]
  - ERYTHEMA [None]
